FAERS Safety Report 8291667-9 (Version None)
Quarter: 2012Q2

REPORT INFORMATION
  Report Type: 
  Country: None (occurrence: None)
  Receive Date: 20120417
  Receipt Date: 20111125
  Transmission Date: 20120825
  Serious: No
  Sender: FDA-Public Use
  Company Number: US-ASTRAZENECA-2004UW01588

PATIENT
  Age: 64 Year
  Sex: Female
  Weight: 59.9 kg

DRUGS (4)
  1. SKELAXIN [Concomitant]
  2. NEXIUM [Suspect]
     Indication: DYSPEPSIA
     Route: 048
     Dates: end: 20040126
  3. CRESTOR [Suspect]
     Route: 048
  4. GENERIC SUDAFED [Concomitant]

REACTIONS (5)
  - BACK PAIN [None]
  - EAR DISCOMFORT [None]
  - SINUSITIS [None]
  - ABDOMINAL PAIN LOWER [None]
  - ADVERSE DRUG REACTION [None]
